FAERS Safety Report 6526603-6 (Version None)
Quarter: 2010Q1

REPORT INFORMATION
  Report Type: 
  Country: None (occurrence: None)
  Receive Date: 20100105
  Receipt Date: 20091223
  Transmission Date: 20100710
  Serious: Yes (Hospitalization)
  Sender: FDA-Public Use
  Company Number: US-ROCHE-663577

PATIENT
  Sex: Female
  Weight: 58.6 kg

DRUGS (15)
  1. PEG-INTERFERON ALFA 2A (RO 25-8310) [Suspect]
     Dosage: PERMANENTLY DISCONTINUED
     Route: 058
     Dates: start: 20090914, end: 20090914
  2. RIBAVIRIN [Suspect]
     Dosage: DOSE: 400/600 PERMANENTLY DISCONTINUED
     Route: 048
     Dates: start: 20090914, end: 20090918
  3. TRUVADA [Suspect]
     Indication: DRUG USE FOR UNKNOWN INDICATION
     Dosage: FREQUENCY: QD
     Route: 065
     Dates: start: 20080102, end: 20090919
  4. FLOVENT [Concomitant]
     Dosage: TOTAL DAILY DOSE NOT LEGIBLE
     Dates: start: 20090218
  5. TRIAMCINOLONE [Concomitant]
     Dosage: TOTAL DAILY DOSE: O.1% AND DRUG NAME REPORTED AS TRIAMICILONE
     Dates: start: 20081205
  6. MOTRIN [Concomitant]
     Dosage: TOTAL DAILY DOSE: 1000
     Dates: start: 20070611
  7. ALBUTEROL [Concomitant]
     Dosage: FREQUENCY:PRN
     Dates: start: 20010801
  8. METHADONE [Concomitant]
     Dosage: TOTAL DAILY DOSE: 219
     Dates: start: 20070213
  9. MECLIZINE [Concomitant]
     Dosage: TOTAL DAILY DOSE: 125
     Dates: start: 20090225
  10. MULTIVITAMIN WITH FE [Concomitant]
     Dosage: DRUG NAME: MVI + IRON
     Dates: start: 20040608
  11. KALETRA [Concomitant]
     Dosage: FREQUENCY: QD
     Dates: start: 20070427
  12. ABACAVIR [Concomitant]
     Dosage: FREQUENCY: QD
     Dates: start: 20080102
  13. ZOMIG [Concomitant]
     Dates: start: 20090721
  14. PRAVASTATIN [Concomitant]
     Dates: start: 20090721
  15. PRILOSEC [Concomitant]
     Dates: start: 20090722

REACTIONS (1)
  - RENAL FAILURE ACUTE [None]
